FAERS Safety Report 21503286 (Version 1)
Quarter: 2022Q4

REPORT INFORMATION
  Report Type: Spontaneous
  Country: US (occurrence: US)
  Receive Date: 20221025
  Receipt Date: 20221025
  Transmission Date: 20230112
  Serious: Yes (Other)
  Sender: FDA-Public Use
  Company Number: US-PFIZER INC-PV202200086491

PATIENT
  Age: 50 Year
  Sex: Male

DRUGS (2)
  1. TOFACITINIB [Suspect]
     Active Substance: TOFACITINIB
     Dosage: 5 MG, 2X/DAY
  2. METHYLPREDNISOLONE [Concomitant]
     Active Substance: METHYLPREDNISOLONE
     Dosage: 8 MG, DAILY
     Route: 048

REACTIONS (7)
  - B-cell lymphoma [Unknown]
  - Haematochezia [Unknown]
  - Therapeutic response unexpected [Recovering/Resolving]
  - Abdominal pain [Unknown]
  - Ulcer [Unknown]
  - Joint contracture [Unknown]
  - Musculoskeletal stiffness [Unknown]
